FAERS Safety Report 8473297-9 (Version None)
Quarter: 2012Q2

REPORT INFORMATION
  Report Type: 
  Country: None (occurrence: None)
  Receive Date: 20120628
  Receipt Date: 20120619
  Transmission Date: 20120825
  Serious: Yes (Other)
  Sender: FDA-Public Use
  Company Number: AR-AMGEN-ARGSP2012033312

PATIENT
  Age: 50 Year
  Sex: Male

DRUGS (4)
  1. INSULIN [Concomitant]
     Dosage: UNK
  2. INSULIN [Concomitant]
     Dosage: UNK
  3. ENBREL [Suspect]
     Indication: PSORIATIC ARTHROPATHY
     Dosage: 50 MG, WEEKLY
     Dates: start: 20090424, end: 20120101
  4. T4 [Concomitant]
     Dosage: UNK

REACTIONS (2)
  - PSORIATIC ARTHROPATHY [None]
  - MENTAL DISORDER [None]
